FAERS Safety Report 8078126-3 (Version None)
Quarter: 2012Q1

REPORT INFORMATION
  Report Type: 
  Country: None (occurrence: None)
  Receive Date: 20120127
  Receipt Date: 20110107
  Transmission Date: 20120608
  Serious: No
  Sender: FDA-Public Use
  Company Number: US-ABBOTT-10P-163-0688531-00

PATIENT
  Age: 37 Year
  Sex: Male

DRUGS (2)
  1. HUMIRA [Suspect]
     Indication: PSORIASIS
     Dates: start: 20100701, end: 20101208
  2. XANAX [Concomitant]
     Indication: PRODUCT USED FOR UNKNOWN INDICATION

REACTIONS (6)
  - COLITIS ULCERATIVE [None]
  - DIARRHOEA [None]
  - DRUG DOSE OMISSION [None]
  - STOMATITIS [None]
  - GENITAL LESION [None]
  - ABDOMINAL PAIN [None]
